FAERS Safety Report 5400890-X (Version None)
Quarter: 2007Q3

REPORT INFORMATION
  Report Type: 
  Country: None (occurrence: None)
  Receive Date: 20070730
  Receipt Date: 20070531
  Transmission Date: 20080115
  Serious: No
  Sender: FDA-Public Use
  Company Number: A0653717A

PATIENT
  Age: 70 Year
  Sex: Female

DRUGS (2)
  1. IMITREX [Suspect]
     Indication: MIGRAINE
     Dosage: 100MG AS REQUIRED
     Route: 048
     Dates: start: 20010531
  2. MULTIVITAMIN [Concomitant]

REACTIONS (2)
  - FEELING HOT [None]
  - PAIN IN EXTREMITY [None]
